FAERS Safety Report 14512000 (Version 1)
Quarter: 2018Q1

REPORT INFORMATION
  Report Type: Spontaneous
  Country: US (occurrence: US)
  Receive Date: 20180209
  Receipt Date: 20180209
  Transmission Date: 20180509
  Serious: Yes (Other)
  Sender: FDA-Public Use
  Company Number: US-TEVA-2018-US-855184

PATIENT
  Age: 54 Year
  Sex: Female

DRUGS (3)
  1. FENTANYL. [Suspect]
     Active Substance: FENTANYL
     Route: 065
     Dates: start: 201712
  2. FENTANYL. [Suspect]
     Active Substance: FENTANYL
     Route: 065
     Dates: start: 2008
  3. FENTANYL. [Suspect]
     Active Substance: FENTANYL
     Indication: BACK PAIN
     Route: 065
     Dates: start: 20180107

REACTIONS (4)
  - Abdominal discomfort [Unknown]
  - Hyperhidrosis [Unknown]
  - Seizure [Unknown]
  - Blood potassium decreased [Unknown]

NARRATIVE: CASE EVENT DATE: 2008
